FAERS Safety Report 8967187 (Version 1)
Quarter: 2012Q4

REPORT INFORMATION
  Report Type: 
  Country: FR (occurrence: FR)
  Receive Date: 20121217
  Receipt Date: 20121217
  Transmission Date: 20130627
  Serious: Yes (Other)
  Sender: FDA-Public Use
  Company Number: FR-JNJFOC-20121203234

PATIENT
  Age: 44 Year
  Sex: Male

DRUGS (2)
  1. RISPERDAL CONSTA [Suspect]
     Indication: PRODUCT USED FOR UNKNOWN INDICATION
     Route: 030
  2. RISPERDAL CONSTA [Suspect]
     Indication: PRODUCT USED FOR UNKNOWN INDICATION
     Route: 030

REACTIONS (9)
  - Depression [Unknown]
  - Hallucination, auditory [Unknown]
  - Nephrolithiasis [Unknown]
  - Anxiety [Unknown]
  - Dyspnoea [Unknown]
  - Fear [Unknown]
  - Erectile dysfunction [Unknown]
  - Off label use [Unknown]
  - Feeling abnormal [Unknown]
